FAERS Safety Report 6128914 (Version 3)
Quarter: 2013Q1

REPORT INFORMATION
  Report Type: Spontaneous
  Country: US (occurrence: US)
  Receive Date: 20060915
  Receipt Date: 20130320
  Transmission Date: 20140127
  Serious: Yes (Death)
  Sender: FDA-Public Use
  Company Number: US-JNJFOC-20060902622

PATIENT
  Age: 18 Year
  Sex: Male

DRUGS (7)
  1. CYCLOBENZAPRINE [Suspect]
     Indication: SUICIDE ATTEMPT
     Route: 048
  2. IBUPROFEN [Suspect]
     Indication: SUICIDE ATTEMPT
     Route: 048
  3. PSEUDOEPHEDRINE [Suspect]
     Indication: SUICIDE ATTEMPT
     Route: 048
  4. ASPIRIN [Suspect]
     Indication: SUICIDE ATTEMPT
     Route: 048
  5. ACETAMINOPHEN + CODEINE PHOSPHATE [Suspect]
     Indication: SUICIDE ATTEMPT
     Route: 048
  6. NAPROXEN [Suspect]
     Indication: SUICIDE ATTEMPT
     Route: 048
  7. ESCITALOPRAM [Suspect]
     Indication: SUICIDE ATTEMPT
     Route: 048

REACTIONS (12)
  - Completed suicide [Fatal]
  - Intentional overdose [Fatal]
  - Subarachnoid haemorrhage [Fatal]
  - Hepatic function abnormal [Fatal]
  - Respiratory failure [Fatal]
  - Renal impairment [Fatal]
  - Tachycardia [None]
  - Hypotension [None]
  - Apnoea [None]
  - Urinary retention [None]
  - Blood creatine phosphokinase increased [None]
  - Myoglobin blood increased [None]
